FAERS Safety Report 11045871 (Version 1)
Quarter: 2015Q2

REPORT INFORMATION
  Report Type: Spontaneous
  Country: US (occurrence: US)
  Receive Date: 20150417
  Receipt Date: 20150417
  Transmission Date: 20150821
  Serious: No
  Sender: FDA-Public Use
  Company Number: US-009507513-1504USA004482

PATIENT
  Sex: Female

DRUGS (1)
  1. NUVARING [Suspect]
     Active Substance: ETHINYL ESTRADIOL\ETONOGESTREL
     Indication: CONTRACEPTION
     Dosage: STRENGTH: .015/0.12 (UNITS NOT PROVIDED)
     Route: 067
     Dates: end: 20150407

REACTIONS (3)
  - Pregnancy with contraceptive device [Unknown]
  - Product quality issue [Unknown]
  - Device expulsion [Unknown]
